FAERS Safety Report 8108042-X (Version None)
Quarter: 2012Q1

REPORT INFORMATION
  Report Type: 
  Country: None (occurrence: None)
  Receive Date: 20120202
  Receipt Date: 20120131
  Transmission Date: 20120608
  Serious: Yes (Other)
  Sender: FDA-Public Use
  Company Number: MX-PFIZER INC-2012017127

PATIENT
  Age: 79 Year
  Sex: Male
  Weight: 60 kg

DRUGS (6)
  1. LOSARTAN [Concomitant]
     Indication: HYPERTENSION
     Dosage: 2 TABLETS, 2X/DAY
     Route: 048
     Dates: start: 20100101
  2. CELEBREX [Suspect]
     Indication: OSTEOARTHRITIS
  3. TRAVATAN [Concomitant]
     Indication: GLAUCOMA
     Dosage: 1 GTT, 1X/DAY
     Route: 047
     Dates: start: 20050101
  4. NEXIUM [Concomitant]
     Indication: GASTRITIS
     Dosage: 1 TABLET, 1X/DAY
     Route: 048
     Dates: start: 20111101
  5. TIMOLOL [Concomitant]
     Indication: GLAUCOMA
     Dosage: 1 GTT, 2X/DAY
     Route: 047
     Dates: start: 20050101
  6. CELEBREX [Suspect]
     Indication: ARTHRITIS
     Dosage: 200 MG, 2X/DAY
     Route: 048
     Dates: start: 20111001, end: 20120124

REACTIONS (5)
  - DUODENOGASTRIC REFLUX [None]
  - GASTRITIS EROSIVE [None]
  - ABDOMINAL DISTENSION [None]
  - DECREASED APPETITE [None]
  - WEIGHT DECREASED [None]
